FAERS Safety Report 8422508-4 (Version None)
Quarter: 2012Q2

REPORT INFORMATION
  Report Type: 
  Country: None (occurrence: None)
  Receive Date: 20120608
  Receipt Date: 20120530
  Transmission Date: 20120825
  Serious: Yes (Hospitalization)
  Sender: FDA-Public Use
  Company Number: US-ABBOTT-12P-163-0941176-00

PATIENT
  Sex: Male
  Weight: 104.42 kg

DRUGS (2)
  1. VICODIN [Concomitant]
     Indication: PAIN
  2. HUMIRA [Suspect]
     Indication: PSORIASIS
     Dates: start: 20090101, end: 20111101

REACTIONS (2)
  - INTERVERTEBRAL DISC DEGENERATION [None]
  - PSORIASIS [None]
